FAERS Safety Report 5299510-7 (Version None)
Quarter: 2007Q1

REPORT INFORMATION
  Report Type: 
  Country: None (occurrence: None)
  Receive Date: 20070201
  Receipt Date: 20061030
  Transmission Date: 20070707
  Serious: No
  Sender: FDA-Public Use
  Company Number: 2006PV024187

PATIENT
  Age: 75 Year
  Sex: Male

DRUGS (6)
  1. BYETTA [Suspect]
     Indication: DIABETES MELLITUS NON-INSULIN-DEPENDENT
     Dosage: 5 MCG;BID;SC
     Route: 058
     Dates: start: 20061018, end: 20061027
  2. INFLUENZA VACCINE [Suspect]
     Indication: INFLUENZA IMMUNISATION
     Dates: start: 20061020, end: 20061020
  3. SHINGLES VACCINE [Suspect]
     Indication: HERPES ZOSTER
     Dates: start: 20061020, end: 20061020
  4. SHINGLES VACCINE [Suspect]
     Indication: PROPHYLAXIS
     Dates: start: 20061020, end: 20061020
  5. ACTOS [Concomitant]
  6. METFORMIN HCL [Concomitant]

REACTIONS (5)
  - BLOOD GLUCOSE INCREASED [None]
  - DECREASED APPETITE [None]
  - DEPRESSED MOOD [None]
  - FEELING COLD [None]
  - NAUSEA [None]
